FAERS Safety Report 5878089-2 (Version None)
Quarter: 2008Q3

REPORT INFORMATION
  Report Type: 
  Country: None (occurrence: None)
  Receive Date: 20080911
  Receipt Date: 20080829
  Transmission Date: 20090109
  Serious: Yes (Hospitalization, Other)
  Sender: FDA-Public Use
  Company Number: CA-MERCK-0809CAN00002

PATIENT
  Age: 44 Year
  Sex: Male

DRUGS (15)
  1. ISENTRESS [Suspect]
     Indication: HIV INFECTION
     Route: 048
     Dates: start: 20070626
  2. RITONAVIR [Concomitant]
     Indication: HIV INFECTION
     Route: 065
  3. CITALOPRAM [Concomitant]
     Indication: DEPRESSION
     Route: 065
  4. ATAZANAVIR [Concomitant]
     Indication: HIV INFECTION
     Route: 065
  5. ENFUVIRTIDE [Concomitant]
     Indication: HIV INFECTION
     Route: 065
     Dates: end: 20070626
  6. BUPROPION HYDROCHLORIDE [Concomitant]
     Indication: DEPRESSION
     Route: 065
     Dates: end: 20070729
  7. BUPROPION HYDROCHLORIDE [Concomitant]
     Route: 065
     Dates: start: 20070730
  8. CLONAZEPAM [Concomitant]
     Indication: DEPRESSION
     Route: 065
     Dates: end: 20070729
  9. CLONAZEPAM [Concomitant]
     Route: 065
     Dates: start: 20070730
  10. [THERAPY UNSPECIFIED] [Concomitant]
     Indication: DEPRESSION
     Route: 065
     Dates: end: 20070730
  11. TENOFOVIR [Concomitant]
     Indication: HIV INFECTION
     Route: 065
  12. EMTRICITABINE [Concomitant]
     Indication: HIV INFECTION
     Route: 065
  13. RISPERIDONE [Concomitant]
     Indication: DEPRESSION
     Route: 065
     Dates: end: 20070729
  14. RISPERIDONE [Concomitant]
     Route: 065
     Dates: start: 20070730
  15. EFAVIRENZ [Suspect]
     Indication: HIV INFECTION
     Route: 065
     Dates: start: 20060602, end: 20070522

REACTIONS (9)
  - ANXIETY [None]
  - DEPRESSION [None]
  - DEPRESSION SUICIDAL [None]
  - DEPRESSIVE SYMPTOM [None]
  - PARANOID PERSONALITY DISORDER [None]
  - PSYCHOMOTOR SKILLS IMPAIRED [None]
  - PSYCHOTIC DISORDER [None]
  - SUICIDAL IDEATION [None]
  - TEARFULNESS [None]
